FAERS Safety Report 11495454 (Version 1)
Quarter: 2015Q3

REPORT INFORMATION
  Report Type: Spontaneous
  Country: US (occurrence: None)
  Receive Date: 20150910
  Receipt Date: 20150910
  Transmission Date: 20151125
  Serious: Yes (Life-Threatening, Hospitalization)
  Sender: FDA-Public Use
  Company Number: None

PATIENT
  Age: 68 Year
  Sex: Female
  Weight: 45.36 kg

DRUGS (9)
  1. MIRALAX [Suspect]
     Active Substance: POLYETHYLENE GLYCOL 3350
     Indication: BOWEL PREPARATION
     Dosage: ENTIRE AMOUNT, ALL TO BE TAKEN ON DAY BEFORE COLONOSCOPY
     Route: 048
     Dates: start: 20150818, end: 20150818
  2. WOBENZYM N [Concomitant]
  3. CRANBERRY EXTRACTS [Concomitant]
  4. VITAMIN C [Concomitant]
     Active Substance: ASCORBIC ACID
  5. FISH OIL [Concomitant]
     Active Substance: FISH OIL
  6. S-ADENOSYLMETHIONINE SULFATE P-TOLUENESULFONATE [Concomitant]
     Active Substance: ADEMETIONINE SULFATE TOSILATE
  7. MG MALATE [Concomitant]
  8. VITAMIN B12 [Concomitant]
     Active Substance: CYANOCOBALAMIN
  9. QUERCETIN [Concomitant]
     Active Substance: QUERCETIN

REACTIONS (4)
  - Loss of consciousness [None]
  - Diarrhoea [None]
  - Vomiting [None]
  - Blood sodium decreased [None]

NARRATIVE: CASE EVENT DATE: 20150819
